FAERS Safety Report 8988708 (Version 2)
Quarter: 2013Q1

REPORT INFORMATION
  Report Type: Spontaneous
  Country: IT (occurrence: IT)
  Receive Date: 20121228
  Receipt Date: 20130125
  Transmission Date: 20140127
  Serious: Yes (Hospitalization)
  Sender: FDA-Public Use
  Company Number: IT-B.I. PHARMACEUTICALS,INC./RIDGEFIELD-2012-BI-04594GD

PATIENT
  Age: 78 Year
  Sex: Female

DRUGS (6)
  1. PRAMIPEXOLE [Suspect]
     Indication: PARKINSON^S DISEASE
     Dosage: 1.05 MG
     Route: 048
  2. LEVODOPA-CARBIDOPA [Suspect]
     Indication: PARKINSON^S DISEASE
     Dosage: 5 TABLETS
     Route: 048
  3. LEVODOPA-CARBIDOPA [Suspect]
     Dosage: 4 TABLETS
     Route: 048
  4. LEVODOPA-BENSERAZIDE [Suspect]
     Indication: PARKINSON^S DISEASE
     Dosage: 625 MG
     Route: 048
  5. LEVODOPA-BENSERAZIDE [Suspect]
     Dosage: 375 MG
     Route: 048
  6. BROMAZEPAM [Concomitant]
     Indication: DYSTHYMIC DISORDER
     Dosage: 10 PLUS 20 DROPS
     Route: 048

REACTIONS (13)
  - Rhabdomyolysis [Unknown]
  - Renal failure acute [Unknown]
  - Anuria [Unknown]
  - Vomiting [Unknown]
  - Diarrhoea [Unknown]
  - Dystonia [Unknown]
  - Chorea [Unknown]
  - Tremor [Unknown]
  - Leukocytosis [Recovered/Resolved]
  - Oliguria [Unknown]
  - Metabolic acidosis [Unknown]
  - Dyskinesia [Unknown]
  - Hyperhidrosis [Unknown]
